FAERS Safety Report 6418078-2 (Version None)
Quarter: 2009Q4

REPORT INFORMATION
  Report Type: 
  Country: None (occurrence: None)
  Receive Date: 20091028
  Receipt Date: 20091019
  Transmission Date: 20100525
  Serious: Yes (Other)
  Sender: FDA-Public Use
  Company Number: GB-PFIZER INC-2009285048

PATIENT
  Age: 58 Year

DRUGS (1)
  1. DEPO-MEDROL [Suspect]
     Dosage: 360 MG, UNK
     Route: 030
     Dates: start: 20081101

REACTIONS (4)
  - ABDOMINAL DISTENSION [None]
  - INCORRECT DOSE ADMINISTERED [None]
  - SCIATIC NERVE INJURY [None]
  - WRONG TECHNIQUE IN DRUG USAGE PROCESS [None]
